FAERS Safety Report 10101785 (Version 2)
Quarter: 2014Q2

REPORT INFORMATION
  Report Type: Report from Study
  Country: US (occurrence: US)
  Receive Date: 20140424
  Receipt Date: 20140618
  Transmission Date: 20141212
  Serious: Yes (Hospitalization, Other)
  Sender: FDA-Public Use
  Company Number: PHEH2014US007659

PATIENT
  Sex: Female

DRUGS (18)
  1. TASIGNA [Suspect]
     Indication: CHRONIC MYELOID LEUKAEMIA
     Dosage: 300 MG, BID
     Route: 048
  2. AUGMENTIN [Concomitant]
  3. CALCIUM [Concomitant]
  4. EFFEXOR [Concomitant]
  5. MULTIVITAMIN                       /00097801/ [Concomitant]
  6. OXYCODONE [Concomitant]
  7. PULMICORT [Concomitant]
  8. SPIRIVA [Concomitant]
  9. AZITHROMYCIN [Concomitant]
  10. VANCOMYCIN [Concomitant]
  11. FLUCONAZOLE [Concomitant]
  12. VENLAFAXINE [Concomitant]
  13. GABAPENTINE [Concomitant]
  14. SULFAMETHOXAZOLE AND TRIMETHOPRIM [Concomitant]
  15. METRONIDAZOLE [Concomitant]
  16. AMOXICILLIN [Concomitant]
  17. PREDNISONE [Concomitant]
  18. VITAMIN D [Concomitant]

REACTIONS (4)
  - Lung abscess [Unknown]
  - Bacterial infection [Unknown]
  - Second primary malignancy [Unknown]
  - Metastatic lymphoma [Unknown]
